FAERS Safety Report 19114094 (Version 3)
Quarter: 2021Q3

REPORT INFORMATION
  Report Type: Report from Study
  Country: US (occurrence: US)
  Receive Date: 20210408
  Receipt Date: 20210701
  Transmission Date: 20211014
  Serious: No
  Sender: FDA-Public Use
  Company Number: NVSC2021US076485

PATIENT
  Sex: Female
  Weight: 64.86 kg

DRUGS (1)
  1. KESIMPTA [Suspect]
     Active Substance: OFATUMUMAB
     Indication: PRODUCT USED FOR UNKNOWN INDICATION
     Dosage: 20 MG, QMO
     Route: 058
     Dates: start: 20201225

REACTIONS (4)
  - Rhinorrhoea [Unknown]
  - Hypersensitivity [Unknown]
  - Eye pruritus [Unknown]
  - Nasopharyngitis [Unknown]
